FAERS Safety Report 12645699 (Version 4)
Quarter: 2016Q4

REPORT INFORMATION
  Report Type: Report from Study
  Country: BZ (occurrence: BZ)
  Receive Date: 20160811
  Receipt Date: 20161006
  Transmission Date: 20170207
  Serious: Yes (Death, Hospitalization, Other)
  Sender: FDA-Public Use
  Company Number: BZ-ALEXION PHARMACEUTICALS INC.-A201605825

PATIENT
  Age: 6 Year
  Sex: Female

DRUGS (1)
  1. ENB-0040 [Suspect]
     Active Substance: ASFOTASE ALFA
     Indication: HYPOPHOSPHATASIA
     Dosage: UNK
     Route: 058
     Dates: end: 20160513

REACTIONS (7)
  - Electrolyte imbalance [Unknown]
  - Sepsis [Unknown]
  - Blood potassium decreased [Unknown]
  - Dehydration [Unknown]
  - Status epilepticus [Fatal]
  - Hypernatraemia [Unknown]
  - Blood calcium increased [Unknown]

NARRATIVE: CASE EVENT DATE: 20160801
